FAERS Safety Report 9228280 (Version 1)
Quarter: 2013Q2

REPORT INFORMATION
  Report Type: Spontaneous
  Country: DE (occurrence: DE)
  Receive Date: 20130412
  Receipt Date: 20130412
  Transmission Date: 20140414
  Serious: Yes (Other)
  Sender: FDA-Public Use
  Company Number: DE-PFIZER INC-2013114176

PATIENT
  Age: 71 Year
  Sex: Male

DRUGS (2)
  1. ATORVASTATIN CALCIUM [Suspect]
     Indication: CARDIAC OPERATION
     Dosage: UNK
     Dates: start: 2011
  2. ATORVASTATIN CALCIUM [Suspect]
     Indication: CARDIAC DISORDER

REACTIONS (1)
  - Diabetes mellitus [Recovering/Resolving]
